FAERS Safety Report 5786228-7 (Version None)
Quarter: 2008Q2

REPORT INFORMATION
  Report Type: 
  Country: None (occurrence: None)
  Receive Date: 20080624
  Receipt Date: 20080616
  Transmission Date: 20081010
  Serious: Yes (Death)
  Sender: FDA-Public Use
  Company Number: IE-SANOFI-SYNTHELABO-A01200806863

PATIENT
  Sex: Male

DRUGS (4)
  1. PAIN-KILLERS [Concomitant]
     Dosage: UNK
  2. INHALERS [Concomitant]
     Dosage: UNK
  3. CAPECITABINE [Concomitant]
     Dosage: UNK
     Route: 048
  4. ELOXATIN [Suspect]
     Indication: COLON CANCER
     Dosage: 208 MG
     Route: 041
     Dates: start: 20071212, end: 20071212

REACTIONS (1)
  - ANAPHYLACTIC REACTION [None]
